FAERS Safety Report 17059983 (Version 1)
Quarter: 2019Q4

REPORT INFORMATION
  Report Type: Spontaneous
  Country: US (occurrence: US)
  Receive Date: 20191121
  Receipt Date: 20191121
  Transmission Date: 20200122
  Serious: No
  Sender: FDA-Public Use
  Company Number: US-NOVOPROD-684877

PATIENT
  Age: 42 Year
  Sex: Female
  Weight: 57.15 kg

DRUGS (2)
  1. TRESIBA [Concomitant]
     Active Substance: INSULIN DEGLUDEC
     Indication: TYPE 1 DIABETES MELLITUS
     Dosage: 20 IU, QD ( AT NIGHT)
     Route: 058
     Dates: start: 20190614
  2. NOVOLOG [Suspect]
     Active Substance: INSULIN ASPART
     Indication: TYPE 1 DIABETES MELLITUS
     Dosage: 6 UNITS AS NEEDED
     Route: 058

REACTIONS (4)
  - Device failure [Unknown]
  - Renal pain [Recovered/Resolved]
  - Blood glucose increased [Recovering/Resolving]
  - Device malfunction [Unknown]

NARRATIVE: CASE EVENT DATE: 20190908
